FAERS Safety Report 18122024 (Version 1)
Quarter: 2020Q3

REPORT INFORMATION
  Report Type: Spontaneous
  Country: JP (occurrence: JP)
  Receive Date: 20200807
  Receipt Date: 20200807
  Transmission Date: 20201103
  Serious: Yes (Hospitalization)
  Sender: FDA-Public Use
  Company Number: JP-TEVA-2020-JP-1812527

PATIENT
  Age: 79 Year
  Sex: Female

DRUGS (2)
  1. METHOTREXATE. [Suspect]
     Active Substance: METHOTREXATE
     Indication: DERMATOMYOSITIS
     Dosage: 12 MG A WEEK
     Route: 065
  2. PREDNISOLONE. [Suspect]
     Active Substance: PREDNISOLONE
     Indication: DERMATOMYOSITIS
     Dosage: 5 MILLIGRAM DAILY;
     Route: 065

REACTIONS (4)
  - Dermatomyositis [Recovering/Resolving]
  - Herpes simplex reactivation [Recovered/Resolved]
  - Condition aggravated [Recovering/Resolving]
  - Stomatitis [Recovered/Resolved]
